FAERS Safety Report 7699393-1 (Version None)
Quarter: 2011Q3

REPORT INFORMATION
  Report Type: 
  Country: None (occurrence: None)
  Receive Date: 20110819
  Receipt Date: 20110810
  Transmission Date: 20111222
  Serious: Yes (Hospitalization, Other)
  Sender: FDA-Public Use
  Company Number: US-ASTRAZENECA-2010SE50930

PATIENT
  Age: 58 Year
  Sex: Male
  Weight: 88 kg

DRUGS (7)
  1. CARVEDILOL [Concomitant]
  2. SYMBICORT [Suspect]
     Dosage: 160/4.5 MCG TWO PUFFS TWO TIMES A DAY
     Route: 055
     Dates: start: 20100201
  3. SYMBICORT [Suspect]
     Dosage: 160/4.5 MCG TWO PUFFS EVERY OTHER DAY
     Route: 055
     Dates: start: 20100201
  4. PLAVIX [Concomitant]
  5. LIPITOR [Concomitant]
  6. SIMVASTATIN [Concomitant]
  7. DIOVAN [Concomitant]

REACTIONS (10)
  - MYOCARDIAL INFARCTION [None]
  - HAEMORRHOIDS [None]
  - HERNIA [None]
  - HAEMORRHOID OPERATION [None]
  - UPPER RESPIRATORY TRACT CONGESTION [None]
  - INAPPROPRIATE SCHEDULE OF DRUG ADMINISTRATION [None]
  - PNEUMONIA [None]
  - HERNIA REPAIR [None]
  - CORONARY ARTERIAL STENT INSERTION [None]
  - DRUG DOSE OMISSION [None]
